FAERS Safety Report 7252635-9 (Version None)
Quarter: 2011Q1

REPORT INFORMATION
  Report Type: 
  Country: None (occurrence: None)
  Receive Date: 20110129
  Receipt Date: 20100412
  Transmission Date: 20110831
  Serious: No
  Sender: FDA-Public Use
  Company Number: US-ABBOTT-10P-163-0637745-00

PATIENT
  Sex: Male
  Weight: 88.53 kg

DRUGS (2)
  1. HUMIRA [Suspect]
     Indication: ANKYLOSING SPONDYLITIS
     Dates: start: 20100201
  2. HUMIRA [Suspect]
     Dates: start: 20081009, end: 20100201

REACTIONS (4)
  - ARTHROPATHY [None]
  - INCORRECT STORAGE OF DRUG [None]
  - JOINT SWELLING [None]
  - ANKYLOSING SPONDYLITIS [None]
